FAERS Safety Report 16686263 (Version 2)
Quarter: 2019Q3

REPORT INFORMATION
  Report Type: Report from Study
  Country: JP (occurrence: JP)
  Receive Date: 20190809
  Receipt Date: 20190913
  Transmission Date: 20191004
  Serious: Yes (Hospitalization, Other)
  Sender: FDA-Public Use
  Company Number: JP-AUROBINDO-AUR-APL-2019-045759

PATIENT
  Age: 68 Year
  Sex: Female
  Weight: 53 kg

DRUGS (8)
  1. PRALATREXATE INJECTION [Suspect]
     Active Substance: PRALATREXATE
     Dosage: 20 MG/M2
     Route: 042
  2. PRALATREXATE INJECTION [Suspect]
     Active Substance: PRALATREXATE
     Indication: PERIPHERAL T-CELL LYMPHOMA UNSPECIFIED
     Dosage: 30 MG/M2
     Route: 065
  3. PRALATREXATE INJECTION [Suspect]
     Active Substance: PRALATREXATE
     Dosage: 20 MG/M2
     Route: 042
  4. HYDROXOCOBALAMIN [Concomitant]
     Active Substance: HYDROXOCOBALAMIN
     Indication: PROPHYLAXIS
     Dosage: UNK
     Route: 030
  5. MUNDESINE [Suspect]
     Active Substance: FORODESINE HYDROCHLORIDE
     Dosage: 600 MILLIGRAM, DAILY
     Route: 065
     Dates: start: 20171005, end: 20171018
  6. FOLIC ACID. [Concomitant]
     Active Substance: FOLIC ACID
     Indication: PROPHYLAXIS
     Dosage: 1 MILLIGRAM
     Route: 048
  7. PRALATREXATE INJECTION [Suspect]
     Active Substance: PRALATREXATE
     Dosage: 20 MG/M2
     Route: 042
  8. MUNDESINE [Suspect]
     Active Substance: FORODESINE HYDROCHLORIDE
     Indication: PERIPHERAL T-CELL LYMPHOMA UNSPECIFIED
     Dosage: 600 MILLIGRAM, DAILY
     Route: 065

REACTIONS (7)
  - Oral disorder [Unknown]
  - Platelet count decreased [Unknown]
  - Therapeutic product effect incomplete [Unknown]
  - Lymphopenia [Unknown]
  - Pleural effusion [Recovering/Resolving]
  - Anaemia [Unknown]
  - Gamma-glutamyltransferase increased [Unknown]

NARRATIVE: CASE EVENT DATE: 20171019
